FAERS Safety Report 15276666 (Version 2)
Quarter: 2018Q3

REPORT INFORMATION
  Report Type: Report from Study
  Country: None (occurrence: CA)
  Receive Date: 20180814
  Receipt Date: 20180910
  Transmission Date: 20181010
  Serious: Yes (Other)
  Sender: FDA-Public Use
  Company Number: CA-ABBVIE-18S-028-2450471-00

PATIENT
  Sex: Male
  Weight: 90.8 kg

DRUGS (1)
  1. LUPRON DEPOT [Suspect]
     Active Substance: LEUPROLIDE ACETATE
     Indication: PROSTATE CANCER
     Route: 030
     Dates: start: 20170512

REACTIONS (3)
  - Road traffic accident [Unknown]
  - Laceration [Unknown]
  - Contusion [Unknown]

NARRATIVE: CASE EVENT DATE: 2018
